FAERS Safety Report 5805810-1 (Version None)
Quarter: 2008Q3

REPORT INFORMATION
  Report Type: 
  Country: None (occurrence: None)
  Receive Date: 20080710
  Receipt Date: 20080514
  Transmission Date: 20090109
  Serious: Yes (Hospitalization)
  Sender: FDA-Public Use
  Company Number: PHHY2008GB08255

PATIENT
  Sex: Male

DRUGS (3)
  1. EXELON [Suspect]
     Dosage: 6 MG, BID
     Route: 048
  2. EXELON [Suspect]
     Dosage: 1.5 MG, BID
     Route: 048
  3. EXELON [Suspect]
     Dosage: 6 MG, BID
     Route: 048

REACTIONS (1)
  - CATATONIA [None]
